FAERS Safety Report 7729767-1 (Version None)
Quarter: 2011Q3

REPORT INFORMATION
  Report Type: 
  Country: None (occurrence: None)
  Receive Date: 20110906
  Receipt Date: 20110831
  Transmission Date: 20111222
  Serious: Yes (Disabling)
  Sender: FDA-Public Use
  Company Number: CH-ROCHE-700271

PATIENT
  Age: 78 Year
  Sex: Female
  Weight: 54 kg

DRUGS (3)
  1. BONIVA [Suspect]
     Dosage: DRUG WITHDRAWN
     Route: 040
     Dates: start: 20090801, end: 20100101
  2. BONIVA [Suspect]
     Indication: OSTEOPOROSIS POSTMENOPAUSAL
     Dosage: DRUG WITHDRAWN
     Route: 048
     Dates: start: 20070901, end: 20090701
  3. CALCIUM SANDOZ [Concomitant]
     Dosage: DRUG: CALCIUM SANDOZ D CALCIUM-SANDOZ D3 FF 1000/880
     Route: 048
     Dates: start: 20070101

REACTIONS (2)
  - MUSCULAR WEAKNESS [None]
  - PATHOLOGICAL FRACTURE [None]
